FAERS Safety Report 21740901 (Version 1)
Quarter: 2022Q4

REPORT INFORMATION
  Report Type: Spontaneous
  Country: CA (occurrence: US)
  Receive Date: 20221216
  Receipt Date: 20221216
  Transmission Date: 20230112
  Serious: Yes (Life-Threatening, Hospitalization, Other)
  Sender: FDA-Public Use
  Company Number: CA-ABBVIE-4239629

PATIENT
  Sex: Female
  Weight: 47 kg

DRUGS (15)
  1. HUMIRA [Suspect]
     Active Substance: ADALIMUMAB
     Indication: Product used for unknown indication
     Route: 058
  2. INFLECTRA [Suspect]
     Active Substance: INFLIXIMAB-DYYB
     Indication: Arthritis
     Route: 065
  3. INFLECTRA [Suspect]
     Active Substance: INFLIXIMAB-DYYB
     Indication: Arthritis
     Route: 065
     Dates: start: 20210331, end: 20210331
  4. MAGNESIUM [Concomitant]
     Active Substance: MAGNESIUM
     Indication: Product used for unknown indication
  5. TALTZ [Suspect]
     Active Substance: IXEKIZUMAB
     Indication: Product used for unknown indication
     Route: 065
  6. PREDNISONE [Concomitant]
     Active Substance: PREDNISONE
     Indication: Product used for unknown indication
     Dates: end: 2021
  7. LAMIVUDINE [Concomitant]
     Active Substance: LAMIVUDINE
     Indication: Product used for unknown indication
  8. IRON [Concomitant]
     Active Substance: IRON
     Indication: Product used for unknown indication
  9. VITAMIN D2 [Concomitant]
     Active Substance: ERGOCALCIFEROL
     Indication: Product used for unknown indication
  10. ERELZI [Suspect]
     Active Substance: ETANERCEPT-SZZS
     Indication: Product used for unknown indication
     Route: 065
  11. VITAMIN D [Concomitant]
     Active Substance: VITAMIN D NOS
     Indication: Product used for unknown indication
  12. PREMARIN [Concomitant]
     Active Substance: ESTROGENS, CONJUGATED
     Indication: Product used for unknown indication
  13. COSENTYX [Suspect]
     Active Substance: SECUKINUMAB
     Indication: Product used for unknown indication
     Route: 065
     Dates: start: 20210218, end: 2021
  14. Cyanocobalamina [Concomitant]
     Indication: Product used for unknown indication
  15. VITAMIN B12 [Concomitant]
     Active Substance: CYANOCOBALAMIN
     Indication: Product used for unknown indication

REACTIONS (28)
  - Chest discomfort [Recovered/Resolved]
  - Weight decreased [Unknown]
  - Gastrointestinal disorder [Unknown]
  - Enthesopathy [Unknown]
  - Defaecation urgency [Unknown]
  - Nausea [Recovered/Resolved]
  - Enthesopathy [Unknown]
  - Arthralgia [Unknown]
  - Restlessness [Unknown]
  - Lymphadenopathy [Unknown]
  - Therapeutic product effect incomplete [Unknown]
  - Flushing [Recovered/Resolved]
  - Anaemia [Unknown]
  - Blood albumin decreased [Unknown]
  - Malaise [Unknown]
  - Hyperhidrosis [Unknown]
  - Red blood cells urine positive [Unknown]
  - Chest pain [Unknown]
  - Musculoskeletal stiffness [Recovered/Resolved]
  - Pain [Unknown]
  - Chronic disease [Unknown]
  - Appetite disorder [Recovering/Resolving]
  - Tendonitis [Unknown]
  - C-reactive protein increased [Unknown]
  - Bowel movement irregularity [Recovered/Resolved]
  - Dizziness [Recovered/Resolved]
  - Hyperhidrosis [Unknown]
  - Arthralgia [Unknown]
